FAERS Safety Report 8414267-6 (Version None)
Quarter: 2012Q2

REPORT INFORMATION
  Report Type: 
  Country: None (occurrence: None)
  Receive Date: 20120323
  Receipt Date: 20111209
  Transmission Date: 20120825
  Serious: Yes (Other)
  Sender: FDA-Public Use
  Company Number: 163-21880-11121528

PATIENT
  Age: 76 Year
  Sex: Male

DRUGS (10)
  1. REVLIMID [Suspect]
     Dosage: 20 MG, QD X 21/28 DAYS, PO
     Route: 048
     Dates: start: 20110701
  2. DECADRON [Concomitant]
  3. CHOLECALCIFEROL (COLECALCIFEROL) [Concomitant]
  4. ATENOLOL [Concomitant]
  5. AREDIA [Concomitant]
  6. ASPIRIN [Concomitant]
  7. VITAMIN D [Concomitant]
  8. NAPROXEN [Concomitant]
  9. MAXZIDE [Concomitant]
  10. ZOVIRAX [Concomitant]

REACTIONS (1)
  - NEUTROPENIA [None]
